FAERS Safety Report 7737778-5 (Version None)
Quarter: 2011Q3

REPORT INFORMATION
  Report Type: 
  Country: None (occurrence: None)
  Receive Date: 20110906
  Receipt Date: 20110822
  Transmission Date: 20111222
  Serious: Yes (Death, Other)
  Sender: FDA-Public Use
  Company Number: US-2011-10607

PATIENT
  Age: 26 Month
  Sex: Male

DRUGS (3)
  1. FLUDARABINE PHOSPHATE [Concomitant]
  2. BUSULFEX [Suspect]
     Indication: BONE MARROW TRANSPLANT
  3. ALEMTUZUMAB (ALEMTUZUMAB) [Concomitant]

REACTIONS (8)
  - DIFFUSE ALVEOLAR DAMAGE [None]
  - TRANSPLANT REJECTION [None]
  - BONE MARROW FAILURE [None]
  - CELLULITIS [None]
  - PULMONARY HYPERTENSION [None]
  - CONDITION AGGRAVATED [None]
  - RESPIRATORY FAILURE [None]
  - STENOTROPHOMONAS INFECTION [None]
